FAERS Safety Report 11520436 (Version 1)
Quarter: 2015Q3

REPORT INFORMATION
  Report Type: Spontaneous
  Country: US (occurrence: US)
  Receive Date: 20150918
  Receipt Date: 20150918
  Transmission Date: 20151125
  Serious: No
  Sender: FDA-Public Use
  Company Number: US-RB-076977-15

PATIENT

DRUGS (2)
  1. AMOXICILLIN. [Concomitant]
     Active Substance: AMOXICILLIN
     Dosage: 1200MG. PATIENT LAST USED THE PRODUCT ON 04/MAR/2015.,BID
     Route: 065
     Dates: start: 20150302
  2. MUCINEX MAXIMUM STRENGTH [Suspect]
     Active Substance: GUAIFENESIN
     Indication: RESPIRATORY TRACT CONGESTION
     Dosage: 1200MG. ,BID
     Route: 065

REACTIONS (1)
  - Drug ineffective [Not Recovered/Not Resolved]
